FAERS Safety Report 9469396 (Version 2)
Quarter: 2013Q4

REPORT INFORMATION
  Report Type: Report from Study
  Country: US (occurrence: US)
  Receive Date: 20130821
  Receipt Date: 20131101
  Transmission Date: 20140711
  Serious: Yes (Other)
  Sender: FDA-Public Use
  Company Number: US-ROCHE-1261564

PATIENT
  Sex: Male

DRUGS (4)
  1. LUCENTIS [Suspect]
     Indication: DIABETIC RETINOPATHY
     Dosage: BOTH EYES
     Route: 050
  2. GLIPIZIDE [Concomitant]
  3. METFORMIN HYDROCHLORIDE [Concomitant]
  4. TRIAMTERENE W HCTZ [Concomitant]

REACTIONS (4)
  - Retinal haemorrhage [Unknown]
  - Vision blurred [Unknown]
  - Visual impairment [Unknown]
  - Retinal exudates [Unknown]
